FAERS Safety Report 7487626 (Version 20)
Quarter: 2013Q1

REPORT INFORMATION
  Report Type: Spontaneous
  Country: CA (occurrence: CA)
  Receive Date: 20100719
  Receipt Date: 20130108
  Transmission Date: 20140127
  Serious: Yes (Death, Hospitalization, Disabling, Other)
  Sender: FDA-Public Use
  Company Number: CA-ROCHE-GNE304143

PATIENT
  Age: 56 Year
  Sex: Female
  Weight: 74.09 kg

DRUGS (13)
  1. XOLAIR [Suspect]
     Indication: ASTHMA
     Route: 058
     Dates: start: 20090729
  2. XOLAIR [Suspect]
     Route: 058
     Dates: start: 20090826
  3. XOLAIR [Suspect]
     Route: 058
     Dates: start: 20100309
  4. XOLAIR [Suspect]
     Route: 058
     Dates: end: 20120320
  5. QVAR [Concomitant]
     Indication: PRODUCT USED FOR UNKNOWN INDICATION
  6. DOXYCYL [Concomitant]
     Indication: PRODUCT USED FOR UNKNOWN INDICATION
  7. DEXTROAMPHETAMINE [Concomitant]
  8. PREDNISONE [Concomitant]
     Route: 065
     Dates: start: 20110906
  9. PULMICORT RESPULES [Concomitant]
  10. MONTELUKAST [Concomitant]
  11. SPIRIVA [Concomitant]
  12. ZENHALE [Concomitant]
  13. SALBUTAMOL [Concomitant]

REACTIONS (21)
  - Death [Fatal]
  - Malaise [Unknown]
  - Asthma [Recovered/Resolved with Sequelae]
  - Urosepsis [Unknown]
  - Respiratory failure [Unknown]
  - Convulsion [Unknown]
  - Intestinal perforation [Unknown]
  - Asthenia [Recovered/Resolved with Sequelae]
  - Hypotension [Unknown]
  - Cerebrovascular accident [Recovered/Resolved with Sequelae]
  - Viral infection [Unknown]
  - Speech disorder [Recovered/Resolved with Sequelae]
  - Pseudomonas infection [Recovered/Resolved with Sequelae]
  - Skin atrophy [Unknown]
  - Contusion [Unknown]
  - Laceration [Unknown]
  - Lung disorder [Unknown]
  - Blood glucose increased [Unknown]
  - Drug ineffective [Unknown]
  - Cough [Unknown]
  - Pulmonary congestion [Unknown]
